FAERS Safety Report 7893183-2 (Version None)
Quarter: 2011Q4

REPORT INFORMATION
  Report Type: 
  Country: None (occurrence: None)
  Receive Date: 20111104
  Receipt Date: 20111021
  Transmission Date: 20120403
  Serious: Yes (Other)
  Sender: FDA-Public Use
  Company Number: PHFR2011GB05070

PATIENT
  Sex: Female

DRUGS (7)
  1. VOLTAREN [Suspect]
     Dosage: 50 MG, QD
     Route: 048
  2. VOLTAREN [Suspect]
     Indication: ARTHRITIS
     Dosage: 50 MG, QD
     Route: 048
  3. VOLTAREN [Suspect]
     Dosage: 50 MG, QD
     Route: 048
  4. VOLTAREN [Suspect]
     Dosage: 50 MG, QD
     Route: 048
  5. VOLTAREN [Suspect]
     Dosage: 50 MG, QD
     Route: 048
  6. VOLTAREN [Suspect]
     Dosage: 50 MG, QD
     Route: 048
  7. VOLTAREN [Suspect]
     Dosage: 50 MG, QD
     Route: 048

REACTIONS (16)
  - THROAT TIGHTNESS [None]
  - LOSS OF CONSCIOUSNESS [None]
  - DRUG DEPENDENCE [None]
  - ORAL DISCOMFORT [None]
  - PAIN [None]
  - DYSPNOEA [None]
  - BURNING SENSATION [None]
  - CONSTIPATION [None]
  - DRUG EFFECT DECREASED [None]
  - RENAL PAIN [None]
  - GAIT DISTURBANCE [None]
  - URINE OUTPUT DECREASED [None]
  - PARAESTHESIA [None]
  - ORAL PAIN [None]
  - LIP PAIN [None]
  - FEELING ABNORMAL [None]
